FAERS Safety Report 16162483 (Version 1)
Quarter: 2019Q2

REPORT INFORMATION
  Report Type: Spontaneous
  Country: US (occurrence: US)
  Receive Date: 20190404
  Receipt Date: 20190404
  Transmission Date: 20190711
  Serious: No
  Sender: FDA-Public Use
  Company Number: None

PATIENT
  Age: 36 Year
  Sex: Female
  Weight: 72 kg

DRUGS (9)
  1. LEVOTHYROXINE. [Concomitant]
     Active Substance: LEVOTHYROXINE
  2. BACLOFEN. [Concomitant]
     Active Substance: BACLOFEN
  3. ALEVE [Concomitant]
     Active Substance: NAPROXEN SODIUM
  4. VITAMIN B12 [Concomitant]
     Active Substance: CYANOCOBALAMIN
  5. VITAMIN C [Concomitant]
     Active Substance: ASCORBIC ACID
  6. VIT D [Concomitant]
     Active Substance: VITAMIN D NOS
  7. ELIQUIS [Concomitant]
     Active Substance: APIXABAN
  8. XARELTO [Suspect]
     Active Substance: RIVAROXABAN
     Indication: JUGULAR VEIN THROMBOSIS
     Dosage: ?          QUANTITY:1 TABLET(S);?
     Route: 048
     Dates: start: 20180906, end: 20181018
  9. MAGNESIUM CITRATE. [Concomitant]
     Active Substance: MAGNESIUM CITRATE

REACTIONS (14)
  - Dizziness [None]
  - Headache [None]
  - Mucosal inflammation [None]
  - Alopecia [None]
  - Menorrhagia [None]
  - Feeling cold [None]
  - Oropharyngeal pain [None]
  - Back pain [None]
  - Polymenorrhoea [None]
  - Nausea [None]
  - Adverse drug reaction [None]
  - Fatigue [None]
  - Pyrexia [None]
  - Dry throat [None]

NARRATIVE: CASE EVENT DATE: 20181126
